FAERS Safety Report 7511626-0 (Version None)
Quarter: 2011Q2

REPORT INFORMATION
  Report Type: 
  Country: None (occurrence: None)
  Receive Date: 20110531
  Receipt Date: 20110525
  Transmission Date: 20111010
  Serious: Yes (Other)
  Sender: FDA-Public Use
  Company Number: BR-PFIZER INC-2010013456

PATIENT
  Age: 56 Year
  Sex: Female
  Weight: 72.3 kg

DRUGS (21)
  1. VENLIFT OD [Concomitant]
     Indication: PANIC DISORDER
     Dosage: 75 MG, UNK
     Dates: start: 20020101
  2. OSTEONUTRI [Concomitant]
     Dosage: UNK
     Dates: start: 20020101
  3. ALENTHUS [Concomitant]
     Indication: ANXIETY
  4. METFORMIN HYDROCHLORIDE [Concomitant]
     Indication: PROPHYLAXIS
     Dosage: 500 MG, UNK
     Dates: start: 20080101
  5. ALPRAZOLAM [Concomitant]
     Indication: PANIC DISORDER
     Dosage: 2 MG, UNK
  6. ALPRAZOLAM [Concomitant]
     Indication: ANXIETY
  7. VARENICLINE TARTRATE [Suspect]
     Dosage: 1 TABLET (UNKNOWN DOSE), ONCE DAILY
     Route: 048
     Dates: start: 20100101, end: 20100101
  8. VARENICLINE TARTRATE [Suspect]
     Dosage: UNK
     Dates: start: 20110412
  9. SIMVASTATIN [Concomitant]
     Indication: BLOOD CHOLESTEROL INCREASED
     Dosage: UNK
     Dates: start: 20040101
  10. ALENTHUS [Concomitant]
     Indication: PANIC DISORDER
     Dosage: UNK
     Dates: start: 20040101
  11. DIACEREIN [Concomitant]
     Dosage: UNK
  12. VARENICLINE TARTRATE [Suspect]
     Dosage: 0.5 MG, 2X/DAY
     Route: 048
     Dates: start: 20100101, end: 20100101
  13. LOSARTAN POTASSIUM [Concomitant]
     Indication: HYPERTENSION
     Dosage: 50 MG, UNK
     Dates: start: 20040101
  14. LIPLESS [Concomitant]
     Dosage: 5 MG, UNK
     Dates: start: 20050101
  15. VARENICLINE TARTRATE [Suspect]
     Indication: TOBACCO USER
     Dosage: 0.5 MG, 1X/DAY
     Route: 048
     Dates: start: 20100121, end: 20100101
  16. VENLIFT OD [Concomitant]
     Indication: ANXIETY
  17. OSCAL [Concomitant]
     Indication: OSTEOPENIA
     Dosage: UNK
     Dates: start: 20020101
  18. VARENICLINE TARTRATE [Suspect]
     Dosage: 1 MG, 1X/DAY
     Route: 048
     Dates: start: 20100101, end: 20100101
  19. VARENICLINE TARTRATE [Suspect]
     Dosage: 1 MG, 2X/DAY
     Route: 048
     Dates: start: 20100101, end: 20100101
  20. AMLODIPINE BESILATE [Concomitant]
     Indication: HYPERTENSION
     Dosage: 10 MG, UNK
     Dates: start: 20040101
  21. HYDROCHLOROTHIAZIDE [Concomitant]
     Indication: HYPERTENSION
     Dosage: UNK

REACTIONS (4)
  - ANXIETY [None]
  - NODULE [None]
  - APATHY [None]
  - LUNG CYST [None]
